FAERS Safety Report 5744494-8 (Version None)
Quarter: 2008Q2

REPORT INFORMATION
  Report Type: 
  Country: None (occurrence: None)
  Receive Date: 20080516
  Receipt Date: 20080512
  Transmission Date: 20081010
  Serious: Yes (Death)
  Sender: FDA-Public Use
  Company Number: 2008SP003766

PATIENT
  Age: 69 Year
  Sex: Female
  Weight: 56.4 kg

DRUGS (3)
  1. TEMOZOLOMIDE [Suspect]
     Indication: GLIOBLASTOMA MULTIFORME
     Dosage: 230 MG HS PO
     Route: 048
     Dates: start: 20080204, end: 20080204
  2. THALIDOMIDE [Suspect]
     Indication: GLIOBLASTOMA MULTIFORME
     Dosage: 200 MG UNK PO
     Route: 048
     Dates: start: 20080204, end: 20080204
  3. COUMADIN [Concomitant]

REACTIONS (6)
  - BLOOD GLUCOSE INCREASED [None]
  - CARDIO-RESPIRATORY ARREST [None]
  - DYSPNOEA [None]
  - HAEMATOCRIT DECREASED [None]
  - PLATELET COUNT DECREASED [None]
  - SOMNOLENCE [None]
